FAERS Safety Report 9252872 (Version 1)
Quarter: 2013Q2

REPORT INFORMATION
  Report Type: Spontaneous
  Country: US (occurrence: US)
  Receive Date: 20130424
  Receipt Date: 20130424
  Transmission Date: 20140414
  Serious: No
  Sender: FDA-Public Use
  Company Number: US-009507513-1304USA007255

PATIENT
  Age: 50 Year
  Sex: Female

DRUGS (6)
  1. REMERON [Suspect]
     Indication: DEPRESSION
     Route: 048
  2. REMERON [Suspect]
     Indication: POST-TRAUMATIC STRESS DISORDER
  3. PREGABALIN [Concomitant]
     Indication: DEPRESSION
  4. PREGABALIN [Concomitant]
     Indication: POST-TRAUMATIC STRESS DISORDER
  5. BUPROPION HYDROCHLORIDE [Concomitant]
     Indication: DEPRESSION
  6. BUPROPION HYDROCHLORIDE [Concomitant]
     Indication: POST-TRAUMATIC STRESS DISORDER

REACTIONS (4)
  - Psychomotor skills impaired [Unknown]
  - Central obesity [Unknown]
  - Drug ineffective [Unknown]
  - Weight increased [Unknown]
